FAERS Safety Report 9408772 (Version 2)
Quarter: 2014Q1

REPORT INFORMATION
  Report Type: Report from Study
  Country: BE (occurrence: BE)
  Receive Date: 20130719
  Receipt Date: 20140114
  Transmission Date: 20141002
  Serious: Yes (Hospitalization)
  Sender: FDA-Public Use
  Company Number: BE-AMGEN-BELCT2013049932

PATIENT
  Age: 61 Year
  Sex: Female

DRUGS (7)
  1. ETANERCEPT [Suspect]
     Indication: RHEUMATOID ARTHRITIS
     Dosage: 25 MG, 2 TIMES/WK
     Route: 058
     Dates: start: 20031224
  2. CALCIUM CARBONATE [Concomitant]
     Dosage: UNK
     Route: 048
  3. D-CURE [Concomitant]
     Dosage: UNK
     Route: 048
  4. LEDERTREXATE                       /00113801/ [Concomitant]
     Dosage: UNK
     Dates: start: 2002
  5. DELTACORTRIL                       /00016201/ [Concomitant]
     Dosage: UNK
     Route: 048
     Dates: start: 20040617
  6. EVISTA [Concomitant]
     Dosage: UNK
     Route: 048
  7. ACTONEL [Concomitant]
     Dosage: UNK
     Route: 048

REACTIONS (2)
  - Rheumatoid arthritis [Recovered/Resolved]
  - Condition aggravated [Recovered/Resolved]
